FAERS Safety Report 25118325 (Version 1)
Quarter: 2025Q1

REPORT INFORMATION
  Report Type: Spontaneous
  Country: ES (occurrence: ES)
  Receive Date: 20250325
  Receipt Date: 20250325
  Transmission Date: 20250408
  Serious: Yes (Other)
  Sender: EPIC PHARM
  Company Number: ES-EPICPHARMA-ES-2025EPCLIT00291

PATIENT
  Age: 12 Month
  Sex: Female

DRUGS (14)
  1. CARBOPLATIN [Suspect]
     Active Substance: CARBOPLATIN
     Indication: Congenital retinoblastoma
     Route: 065
  2. ETOPOSIDE [Suspect]
     Active Substance: ETOPOSIDE
     Indication: Congenital retinoblastoma
     Route: 065
  3. ETOPOSIDE [Suspect]
     Active Substance: ETOPOSIDE
     Route: 065
  4. ETOPOSIDE [Suspect]
     Active Substance: ETOPOSIDE
     Route: 065
  5. VINCRISTINE [Suspect]
     Active Substance: VINCRISTINE
     Indication: Congenital retinoblastoma
     Route: 065
  6. VINCRISTINE [Suspect]
     Active Substance: VINCRISTINE
     Route: 065
  7. TOPOTECAN [Concomitant]
     Active Substance: TOPOTECAN HYDROCHLORIDE
     Route: 035
  8. TOPOTECAN [Concomitant]
     Active Substance: TOPOTECAN HYDROCHLORIDE
     Route: 013
  9. TOPOTECAN [Concomitant]
     Active Substance: TOPOTECAN HYDROCHLORIDE
     Route: 037
  10. MELPHALAN [Concomitant]
     Active Substance: MELPHALAN
     Route: 013
  11. CYCLOPHOSPHAMIDE [Concomitant]
     Active Substance: CYCLOPHOSPHAMIDE
     Route: 065
  12. THIOTEPA [Concomitant]
     Active Substance: THIOTEPA
     Route: 065
  13. NAXITAMAB [Concomitant]
     Active Substance: NAXITAMAB
     Dosage: 5 CYCLES
     Route: 065
  14. SARGRAMOSTIM [Concomitant]
     Active Substance: SARGRAMOSTIM
     Route: 065

REACTIONS (2)
  - Hypoacusis [Unknown]
  - Product use in unapproved indication [Unknown]
